FAERS Safety Report 6490485-1 (Version None)
Quarter: 2009Q4

REPORT INFORMATION
  Report Type: 
  Country: None (occurrence: None)
  Receive Date: 20091210
  Receipt Date: 20091210
  Transmission Date: 20100525
  Serious: Yes (Death)
  Sender: FDA-Public Use
  Company Number: None

PATIENT
  Sex: Male

DRUGS (2)
  1. FLECAINIDE ACETATE [Suspect]
     Dosage: 1 TAB TWICE A DAY BY MOUTH JUST FILLED ON 11/13/09DOSE DECR
     Route: 048
     Dates: start: 20091113
  2. MYCOPHENOLATE MOFETIL [Suspect]
     Dosage: 2 TAB TWICE A DAY BY MOUTH JUST FILLED ON 11/13/09
     Route: 048
     Dates: start: 20091113

REACTIONS (1)
  - RENAL TRANSPLANT [None]
